FAERS Safety Report 8478231-3 (Version None)
Quarter: 2012Q2

REPORT INFORMATION
  Report Type: 
  Country: None (occurrence: None)
  Receive Date: 20120629
  Receipt Date: 20120620
  Transmission Date: 20120825
  Serious: Yes (Other)
  Sender: FDA-Public Use
  Company Number: FR-JNJFOC-20120611560

PATIENT
  Age: 13 Year
  Sex: Male

DRUGS (11)
  1. TOPIRAMATE [Suspect]
     Indication: EPILEPSY
     Dosage: 2 WEEKS
     Route: 048
  2. TOPIRAMATE [Suspect]
     Dosage: 2 WEEKS
     Route: 048
     Dates: start: 20120503
  3. CLONAZEPAM [Concomitant]
     Indication: PRODUCT USED FOR UNKNOWN INDICATION
     Route: 065
  4. TOPIRAMATE [Suspect]
     Dosage: 2 WEEKS
     Route: 048
  5. PULMICORT [Concomitant]
     Indication: PRODUCT USED FOR UNKNOWN INDICATION
     Route: 065
  6. MICROPAKINE [Concomitant]
     Indication: EPILEPSY
     Route: 065
  7. SEVERAL UNSPECIFIED MEDICATIONS [Concomitant]
     Indication: PRODUCT USED FOR UNKNOWN INDICATION
     Route: 065
  8. KEPPRA [Concomitant]
     Indication: EPILEPSY
     Route: 065
  9. ZITHROMAX [Concomitant]
     Indication: PRODUCT USED FOR UNKNOWN INDICATION
     Route: 065
  10. OGAST [Concomitant]
     Indication: PRODUCT USED FOR UNKNOWN INDICATION
     Route: 065
  11. TOPIRAMATE [Suspect]
     Route: 048
     Dates: end: 20120618

REACTIONS (4)
  - DEPRESSION [None]
  - BLISTER [None]
  - EYE SWELLING [None]
  - RASH MACULAR [None]
